FAERS Safety Report 4990281-8 (Version None)
Quarter: 2006Q2

REPORT INFORMATION
  Report Type: 
  Country: None (occurrence: None)
  Receive Date: 20060503
  Receipt Date: 20060426
  Transmission Date: 20061013
  Serious: Yes (Hospitalization)
  Sender: FDA-Public Use
  Company Number: FR-GLAXOSMITHKLINE-B0421438A

PATIENT
  Age: 69 Year
  Sex: Female
  Weight: 72 kg

DRUGS (7)
  1. ZOPHREN [Suspect]
     Dosage: 2MG PER DAY
     Route: 042
     Dates: start: 20060324, end: 20060324
  2. MEDROL [Suspect]
     Dosage: 50MG SEE DOSAGE TEXT
     Route: 048
     Dates: start: 20060323, end: 20060325
  3. TAXOTERE [Suspect]
     Indication: BREAST CANCER FEMALE
     Dosage: 160MG PER DAY
     Route: 042
     Dates: start: 20060324, end: 20060324
  4. ACTOS [Suspect]
     Dosage: 1UNIT PER DAY
     Route: 048
  5. ENDOTELON [Suspect]
     Dosage: 150MG THREE TIMES PER DAY
     Route: 048
     Dates: end: 20060324
  6. SOLU-MEDROL [Suspect]
     Dosage: 40MG PER DAY
     Route: 042
     Dates: start: 20060324, end: 20060324
  7. ARIMIDEX [Suspect]
     Dosage: 1UNIT PER DAY
     Route: 065
     Dates: start: 20060105, end: 20060324

REACTIONS (1)
  - BLOOD GLUCOSE INCREASED [None]
